FAERS Safety Report 8230722-6 (Version None)
Quarter: 2012Q1

REPORT INFORMATION
  Report Type: 
  Country: None (occurrence: None)
  Receive Date: 20120323
  Receipt Date: 20120315
  Transmission Date: 20120608
  Serious: Yes (Other)
  Sender: FDA-Public Use
  Company Number: PHHY2012GB023098

PATIENT
  Age: 72 Year
  Sex: Male

DRUGS (8)
  1. CODEINE [Concomitant]
  2. DIGOXIN [Concomitant]
     Dosage: 125 UG, UNK
  3. LEVETIRACETAM [Suspect]
     Indication: EPILEPSY
     Dosage: 250 MG, BID
  4. CITALOPRAM HYDROBROMIDE [Concomitant]
     Dosage: 20 MG, UNK
  5. AMITRIPTYLINE HCL [Concomitant]
     Dosage: 25 MG, UNK
  6. CITALOPRAM HYDROBROMIDE [Concomitant]
     Indication: DEPRESSION
     Dosage: UNKNOWN
  7. SIMVASTATIN [Concomitant]
     Dosage: 40 MG, UNK
  8. INDAPAMIDE [Concomitant]
     Dosage: 2.5 MG, UNK

REACTIONS (11)
  - DEPRESSION [None]
  - DYSPHONIA [None]
  - PERSECUTORY DELUSION [None]
  - MOBILITY DECREASED [None]
  - DELIRIUM [None]
  - HALLUCINATION [None]
  - INCONTINENCE [None]
  - MUSCULAR WEAKNESS [None]
  - SOMNOLENCE [None]
  - DECREASED EYE CONTACT [None]
  - PARANOIA [None]
